FAERS Safety Report 9038293 (Version 2)
Quarter: 2013Q1

REPORT INFORMATION
  Report Type: Report from Study
  Country: CZ (occurrence: CZ)
  Receive Date: 20130129
  Receipt Date: 20130206
  Transmission Date: 20140127
  Serious: Yes (Death)
  Sender: FDA-Public Use
  Company Number: CZ-ASTRAZENECA-2013SE06022

PATIENT
  Age: 21776 Day
  Sex: Male

DRUGS (10)
  1. AZD6140 [Suspect]
     Indication: CORONARY ARTERY DISEASE
     Route: 048
     Dates: start: 20120912, end: 20121206
  2. BRILIQUE [Concomitant]
     Indication: ANGINA UNSTABLE
     Route: 048
     Dates: start: 20121108
  3. PIRAMIL [Concomitant]
     Indication: HYPERTENSION
     Route: 048
  4. CONTROLOC [Concomitant]
     Indication: GASTRIC ULCER
     Route: 048
  5. LIPANTHYL [Concomitant]
     Indication: HYPERLIPIDAEMIA
     Route: 048
     Dates: start: 20121101
  6. CONCOR [Concomitant]
     Indication: CORONARY ARTERY DISEASE
     Route: 048
  7. ROSUCARD [Concomitant]
     Indication: HYPERCHOLESTEROLAEMIA
     Route: 048
  8. ROSUCARD [Concomitant]
     Indication: CORONARY ARTERY DISEASE
     Route: 048
  9. ASA [Concomitant]
     Route: 048
     Dates: start: 20121108, end: 20121108
  10. ASA [Concomitant]
     Route: 048

REACTIONS (1)
  - Cardiac arrest [Fatal]
